FAERS Safety Report 8502231-8 (Version None)
Quarter: 2012Q3

REPORT INFORMATION
  Report Type: 
  Country: None (occurrence: None)
  Receive Date: 20120711
  Receipt Date: 20120705
  Transmission Date: 20120928
  Serious: Yes (Other)
  Sender: FDA-Public Use
  Company Number: PHHY2012GB058239

PATIENT
  Age: 36 Year
  Sex: Male

DRUGS (3)
  1. CYCLOSPORINE [Suspect]
     Indication: BONE MARROW TRANSPLANT
     Dosage: 30 MG, BID
  2. PREDNISOLONE [Suspect]
     Indication: BONE MARROW TRANSPLANT
     Dosage: 3 MG, DAILY
  3. IMIQUIMOD [Concomitant]

REACTIONS (9)
  - BOWEN'S DISEASE [None]
  - SQUAMOUS CELL CARCINOMA [None]
  - SKIN LESION [None]
  - PAPILLOMA VIRAL INFECTION [None]
  - PAIN OF SKIN [None]
  - NAIL GROWTH ABNORMAL [None]
  - SKIN PAPILLOMA [None]
  - INFECTION [None]
  - GRAFT VERSUS HOST DISEASE [None]
